FAERS Safety Report 6564344-X (Version None)
Quarter: 2010Q1

REPORT INFORMATION
  Report Type: 
  Country: None (occurrence: None)
  Receive Date: 20100201
  Receipt Date: 20100118
  Transmission Date: 20100710
  Serious: Yes (Other)
  Sender: FDA-Public Use
  Company Number: GB-JNJFOC-20100107817

PATIENT
  Age: 17 Year
  Sex: Male

DRUGS (17)
  1. CAELYX [Suspect]
     Indication: BURKITT'S LYMPHOMA
     Route: 042
  2. ITRACONAZOLE [Suspect]
     Indication: PROPHYLAXIS
     Route: 065
  3. CYCLOPHOSPHAMIDE [Suspect]
     Indication: BURKITT'S LYMPHOMA
     Route: 065
  4. CYTARABINE [Suspect]
     Indication: BURKITT'S LYMPHOMA
     Route: 065
  5. DEXRAZOXANE [Suspect]
     Indication: DRUG USE FOR UNKNOWN INDICATION
     Route: 065
  6. ETOPOSIDE [Suspect]
     Indication: BURKITT'S LYMPHOMA
     Route: 065
  7. MERCAPTOPURINE [Suspect]
     Indication: BURKITT'S LYMPHOMA
     Route: 065
  8. METHOTREXATE [Suspect]
     Indication: BURKITT'S LYMPHOMA
     Route: 065
  9. PREDNISOLONE [Suspect]
     Indication: BURKITT'S LYMPHOMA
     Dosage: 2G/M2
     Route: 065
  10. RITUXIMAB [Suspect]
     Indication: BURKITT'S LYMPHOMA
     Dosage: CUMULATIVE DOSE: 1500MG
     Route: 065
  11. TACROLIMUS [Suspect]
     Indication: IMMUNOSUPPRESSION
     Route: 065
  12. THIOGUANINE [Suspect]
     Indication: BURKITT'S LYMPHOMA
     Route: 065
  13. TRIMETHOPRIM [Suspect]
     Indication: PROPHYLAXIS
     Route: 065
  14. VINCRISTINE SULFATE [Suspect]
     Indication: BURKITT'S LYMPHOMA
     Route: 065
  15. ACYCLOVIR [Suspect]
     Indication: PROPHYLAXIS
     Route: 065
  16. ONCOVIN [Concomitant]
     Route: 065
  17. PREDNISONE [Concomitant]
     Route: 065

REACTIONS (2)
  - NEUTROPENIA [None]
  - RENAL IMPAIRMENT [None]
